FAERS Safety Report 15973726 (Version 2)
Quarter: 2019Q1

REPORT INFORMATION
  Report Type: Spontaneous
  Country: PL (occurrence: PL)
  Receive Date: 20190217
  Receipt Date: 20190227
  Transmission Date: 20190418
  Serious: Yes (Other)
  Sender: FDA-Public Use
  Company Number: PL-JNJFOC-20190211734

PATIENT
  Age: 47 Year
  Sex: Female

DRUGS (8)
  1. DIPHENHYDRAMINE. [Suspect]
     Active Substance: DIPHENHYDRAMINE
     Indication: DRUG PROVOCATION TEST
     Dosage: 12.5 MG/5 ML
     Route: 048
  2. CETIRIZINE HYDROCHLORIDE. [Suspect]
     Active Substance: CETIRIZINE HYDROCHLORIDE
     Indication: DRUG PROVOCATION TEST
     Dosage: 1 MG/ML
     Route: 048
  3. CETIRIZINE HYDROCHLORIDE. [Suspect]
     Active Substance: CETIRIZINE HYDROCHLORIDE
     Route: 048
  4. LEVOCETIRIZINE [Suspect]
     Active Substance: LEVOCETIRIZINE
     Indication: DRUG PROVOCATION TEST
     Dosage: 2.5 MG/ML
     Route: 048
  5. DOXEPIN [Suspect]
     Active Substance: DOXEPIN
     Indication: DRUG PROVOCATION TEST
     Dosage: 10 MG/ML
     Route: 048
  6. HYDROXYZINE [Suspect]
     Active Substance: HYDROXYZINE HYDROCHLORIDE
     Indication: DRUG PROVOCATION TEST
     Dosage: 10 MG/ML
     Route: 048
  7. LORATADINE. [Suspect]
     Active Substance: LORATADINE
     Indication: DRUG PROVOCATION TEST
     Dosage: 5 MG/ML
     Route: 048
  8. FEXOFENADINE [Suspect]
     Active Substance: FEXOFENADINE\FEXOFENADINE HYDROCHLORIDE
     Indication: DRUG PROVOCATION TEST
     Dosage: 30 MG/ML
     Route: 048

REACTIONS (3)
  - Dyspnoea [Recovered/Resolved]
  - Pruritus generalised [Recovered/Resolved]
  - Cough [Recovered/Resolved]
